FAERS Safety Report 11669918 (Version 1)
Quarter: 2015Q4

REPORT INFORMATION
  Report Type: Spontaneous
  Country: US (occurrence: US)
  Receive Date: 20151027
  Receipt Date: 20151027
  Transmission Date: 20160304
  Serious: No
  Sender: FDA-Public Use
  Company Number: US-ELI_LILLY_AND_COMPANY-US201004006413

PATIENT
  Age: 82 Year
  Sex: Female

DRUGS (1)
  1. FORTEO [Suspect]
     Active Substance: TERIPARATIDE
     Indication: OSTEOPOROSIS
     Dosage: 20 UG, DAILY (1/D)
     Dates: start: 200906, end: 20100419

REACTIONS (12)
  - Frustration [Unknown]
  - Dizziness [Unknown]
  - Sternal fracture [Unknown]
  - Anxiety [Unknown]
  - Fatigue [Unknown]
  - Hearing impaired [Unknown]
  - Vaginal haemorrhage [Unknown]
  - Fall [Unknown]
  - Depressed mood [Unknown]
  - Joint injury [Unknown]
  - Alopecia [Unknown]
  - Emotional disorder [Unknown]

NARRATIVE: CASE EVENT DATE: 2009
